FAERS Safety Report 4905955-4 (Version None)
Quarter: 2006Q1

REPORT INFORMATION
  Report Type: 
  Country: None (occurrence: None)
  Receive Date: 20060206
  Receipt Date: 20060124
  Transmission Date: 20060701
  Serious: Yes (Hospitalization, Other)
  Sender: FDA-Public Use
  Company Number: 2006012314

PATIENT
  Age: 84 Year
  Sex: Female
  Weight: 56.246 kg

DRUGS (4)
  1. LIPITOR [Suspect]
     Indication: BLOOD CHOLESTEROL INCREASED
     Dosage: 10 MG (10 MG, 1 IN 1 D)
  2. ADALAT (NIFIDIPINE) [Concomitant]
  3. TRIAMTERENE (TRIAMTERENE) [Concomitant]
  4. ASPIRIN [Concomitant]

REACTIONS (4)
  - BLOOD CHOLESTEROL INCREASED [None]
  - FALL [None]
  - HIP FRACTURE [None]
  - MOBILITY DECREASED [None]
